FAERS Safety Report 23576582 (Version 2)
Quarter: 2024Q2

REPORT INFORMATION
  Report Type: Spontaneous
  Country: DE (occurrence: DE)
  Receive Date: 20240228
  Receipt Date: 20240404
  Transmission Date: 20240715
  Serious: Yes (Other)
  Sender: FDA-Public Use
  Company Number: DE-BRISTOL-MYERS SQUIBB COMPANY-2023-089224

PATIENT
  Age: 59 Year
  Sex: Male
  Weight: 105 kg

DRUGS (34)
  1. FLUOROURACIL [Suspect]
     Active Substance: FLUOROURACIL
     Indication: Gastric cancer
     Dosage: UNK
     Route: 042
     Dates: start: 20230324
  2. DOCETAXEL [Suspect]
     Active Substance: DOCETAXEL\DOCETAXEL ANHYDROUS
     Indication: Gastric cancer
     Dosage: 107.000MG BIW
     Route: 042
     Dates: start: 20230324
  3. LEUCOVORIN [Suspect]
     Active Substance: LEUCOVORIN\LEUCOVORIN CALCIUM
     Indication: Prophylaxis
     Dosage: FREQUENCY: ONCE
     Route: 040
     Dates: start: 20230324
  4. LEUCOVORIN [Suspect]
     Active Substance: LEUCOVORIN\LEUCOVORIN CALCIUM
     Dosage: 600 MG
     Route: 048
     Dates: start: 20230324
  5. OXALIPLATIN [Suspect]
     Active Substance: OXALIPLATIN
     Indication: Gastric cancer
     Dosage: 182.000MG BIW
     Route: 042
     Dates: start: 20230324
  6. OPDIVO [Suspect]
     Active Substance: NIVOLUMAB
     Route: 040
     Dates: start: 20230323, end: 20230907
  7. OPDIVO [Suspect]
     Active Substance: NIVOLUMAB
     Indication: Gastric cancer
     Dosage: 240.000MG BIW
     Route: 042
     Dates: start: 20230323
  8. BENZYDAMINE [Concomitant]
     Active Substance: BENZYDAMINE
     Indication: Prophylaxis
     Route: 048
     Dates: start: 20230323
  9. BISOPROLOL [Concomitant]
     Active Substance: BISOPROLOL\BISOPROLOL FUMARATE
     Indication: Product used for unknown indication
     Dosage: 5.000MG QD
     Route: 048
  10. EPLERENONE [Concomitant]
     Active Substance: EPLERENONE
     Indication: Product used for unknown indication
     Dosage: 50.000MG QD
     Route: 048
  11. ESOMEPRAZOLE [Concomitant]
     Active Substance: ESOMEPRAZOLE
     Dosage: 40 G
     Route: 048
     Dates: start: 20230306
  12. ESOMEPRAZOLE [Concomitant]
     Active Substance: ESOMEPRAZOLE
     Indication: Product used for unknown indication
     Dosage: 40.000G QD
     Route: 048
  13. FRESUBIN YODRINK [Concomitant]
     Dosage: 200 ML
     Route: 048
     Dates: start: 20230313
  14. FRESUBIN YODRINK [Concomitant]
     Indication: Product used for unknown indication
     Dosage: 200.000DF
     Route: 048
     Dates: start: 20230313
  15. INDAPAMIDE [Concomitant]
     Active Substance: INDAPAMIDE
     Indication: Product used for unknown indication
     Dosage: 1.500MG QD
     Route: 048
  16. Kalinor [Concomitant]
     Indication: Product used for unknown indication
     Dosage: 1.560G TIW
     Route: 048
  17. LERCANIDIPINE [Concomitant]
     Active Substance: LERCANIDIPINE
     Indication: Product used for unknown indication
     Route: 048
  18. LOPERAMIDE [Concomitant]
     Active Substance: LOPERAMIDE
     Indication: Product used for unknown indication
     Dosage: 4.000G
     Route: 048
     Dates: start: 20230313
  19. MCP [Concomitant]
     Active Substance: METOCLOPRAMIDE HYDROCHLORIDE
     Indication: Product used for unknown indication
     Dosage: 10.000MG
     Route: 048
     Dates: start: 20230313
  20. METAMIZOLE [Concomitant]
     Active Substance: METAMIZOLE
     Indication: Product used for unknown indication
     Dosage: 1.000G
     Route: 048
  21. Novamin [Concomitant]
     Indication: Product used for unknown indication
     Dosage: 4 DAILY
     Route: 040
     Dates: start: 20230608
  22. OLIMEL [Concomitant]
     Active Substance: AMINO ACIDS\DEXTROSE\SOYBEAN OIL
     Dosage: 4.4%
     Route: 040
     Dates: start: 20230313
  23. OLIMEL [Concomitant]
     Active Substance: AMINO ACIDS\DEXTROSE\SOYBEAN OIL
     Indication: Product used for unknown indication
     Dosage: 4.4%
     Route: 042
     Dates: start: 20230313
  24. ONDANSETRON [Concomitant]
     Active Substance: ONDANSETRON
     Indication: Product used for unknown indication
     Dosage: 4.000MG
     Route: 048
     Dates: start: 20230313
  25. PANTOPRAZOLE [Concomitant]
     Active Substance: PANTOPRAZOLE
     Indication: Product used for unknown indication
     Route: 040
     Dates: start: 20230608
  26. ROPIVACAIN ACTAVIS [Concomitant]
     Indication: Product used for unknown indication
     Dosage: 2.000MG QID
     Route: 008
     Dates: start: 20230608
  27. ROPIVACAINE [Concomitant]
     Active Substance: ROPIVACAINE
     Indication: Product used for unknown indication
     Route: 008
     Dates: start: 20230608
  28. LEUCOVORIN [Concomitant]
     Active Substance: LEUCOVORIN\LEUCOVORIN CALCIUM
     Indication: Prophylaxis
     Dosage: 200.000MG/M2 QD
     Route: 040
     Dates: start: 20230324
  29. SUFENTANIL [Concomitant]
     Active Substance: SUFENTANIL
     Dosage: 50 UG
     Route: 008
     Dates: start: 20230608
  30. SUFENTANIL [Concomitant]
     Active Substance: SUFENTANIL
     Indication: Product used for unknown indication
     Dosage: 50.000UG QID
     Route: 008
     Dates: start: 20230608
  31. TORSEMIDE [Concomitant]
     Active Substance: TORSEMIDE
     Indication: Product used for unknown indication
     Dosage: 5 MG, QD
     Route: 048
     Dates: start: 20230324
  32. VALSARTAN [Concomitant]
     Active Substance: VALSARTAN
     Indication: Product used for unknown indication
     Dosage: 160.000MG QD
     Route: 048
  33. VITAMIN C [Concomitant]
     Active Substance: ASCORBIC ACID
     Indication: Prophylaxis
     Route: 040
     Dates: start: 20230608
  34. LEUCOVORIN SODIUM [Concomitant]
     Active Substance: LEUCOVORIN SODIUM
     Indication: Prophylaxis
     Dosage: 200.000MG/M2 QD
     Route: 042
     Dates: start: 20230324

REACTIONS (15)
  - Anastomotic ulcer [Unknown]
  - Gastric ulcer [Recovered/Resolved]
  - Hypokalaemia [Recovered/Resolved]
  - Leukopenia [Unknown]
  - Infusion related reaction [Recovered/Resolved]
  - Scar pain [Unknown]
  - Memory impairment [Unknown]
  - Gastric ulcer helicobacter [Unknown]
  - Anaemia [Recovered/Resolved]
  - Diarrhoea [Unknown]
  - Nausea [Unknown]
  - Dyspnoea [Unknown]
  - Neutrophil count decreased [Unknown]
  - Alopecia [Unknown]
  - Chest pain [Unknown]

NARRATIVE: CASE EVENT DATE: 20230418
